FAERS Safety Report 18569274 (Version 1)
Quarter: 2020Q4

REPORT INFORMATION
  Report Type: Spontaneous
  Country: US (occurrence: US)
  Receive Date: 20201202
  Receipt Date: 20201202
  Transmission Date: 20210114
  Serious: No
  Sender: FDA-Public Use
  Company Number: US-CHIESI USA, INC.-US-2020CHI000155

PATIENT

DRUGS (2)
  1. BETHKIS [Suspect]
     Active Substance: TOBRAMYCIN
     Dosage: UNK
     Route: 065
     Dates: end: 202004
  2. BETHKIS [Suspect]
     Active Substance: TOBRAMYCIN
     Indication: PRODUCT USED FOR UNKNOWN INDICATION
     Dosage: 300 MG, BID
     Route: 055
     Dates: end: 202002

REACTIONS (1)
  - Cough [Recovering/Resolving]
